FAERS Safety Report 5725897-4 (Version None)
Quarter: 2008Q2

REPORT INFORMATION
  Report Type: 
  Country: None (occurrence: None)
  Receive Date: 20080501
  Receipt Date: 20080501
  Transmission Date: 20081010
  Serious: Yes (Hospitalization)
  Sender: FDA-Public Use
  Company Number: None

PATIENT
  Age: 46 Year
  Sex: Male
  Weight: 68.0396 kg

DRUGS (2)
  1. ISENTRESS [Suspect]
     Indication: HIV INFECTION
     Dosage: 800 MG Q12H PO
     Route: 048
     Dates: start: 20080402, end: 20080412
  2. PREZISTA [Suspect]
     Indication: HIV INFECTION
     Dosage: 300 MG Q12H PO
     Route: 048
     Dates: start: 20080402, end: 20080412

REACTIONS (6)
  - DISEASE RECURRENCE [None]
  - DRUG DISPENSING ERROR [None]
  - IMMUNE RECONSTITUTION SYNDROME [None]
  - INCORRECT DOSE ADMINISTERED [None]
  - MEDICATION ERROR [None]
  - PNEUMOCYSTIS JIROVECI PNEUMONIA [None]
